FAERS Safety Report 5326278-8 (Version None)
Quarter: 2007Q2

REPORT INFORMATION
  Report Type: 
  Country: None (occurrence: None)
  Receive Date: 20070514
  Receipt Date: 20070514
  Transmission Date: 20071010
  Serious: Yes (Hospitalization)
  Sender: FDA-Public Use
  Company Number: None

PATIENT
  Sex: Female
  Weight: 68.9467 kg

DRUGS (1)
  1. FOSAMAX PLUS D [Suspect]
     Indication: OSTEOPENIA
     Dosage: 1 TABLET WEEKLY PO
     Route: 048
     Dates: start: 20070429, end: 20070506

REACTIONS (6)
  - BONE PAIN [None]
  - DIARRHOEA [None]
  - EAR PAIN [None]
  - HEADACHE [None]
  - NAUSEA [None]
  - URINARY TRACT INFECTION [None]
